FAERS Safety Report 13126711 (Version 2)
Quarter: 2018Q1

REPORT INFORMATION
  Report Type: Spontaneous
  Country: US (occurrence: US)
  Receive Date: 20170118
  Receipt Date: 20180122
  Transmission Date: 20180508
  Serious: Yes (Other)
  Sender: FDA-Public Use
  Company Number: US-ROCHE-1718189

PATIENT

DRUGS (1)
  1. RITUXAN [Suspect]
     Active Substance: RITUXIMAB
     Indication: PRODUCT USED FOR UNKNOWN INDICATION
     Dosage: 100 MG/ML VIAL?LIQUID VIALS OF RITUXAN 500MG/50ML
     Route: 042

REACTIONS (2)
  - Infusion related reaction [Unknown]
  - Product quality issue [Unknown]

NARRATIVE: CASE EVENT DATE: 2016
